FAERS Safety Report 5388962-X (Version None)
Quarter: 2007Q3

REPORT INFORMATION
  Report Type: 
  Country: None (occurrence: None)
  Receive Date: 20070717
  Receipt Date: 20070710
  Transmission Date: 20080115
  Serious: Yes (Other)
  Sender: FDA-Public Use
  Company Number: PHEH2007US09901

PATIENT
  Sex: Female

DRUGS (2)
  1. TOPROL-XL [Suspect]
     Dosage: 100MG, UNK
  2. DIOVAN HCT [Suspect]
     Dosage: 160MG VAL/12.5MG HCT, 1/2 TAB UNK

REACTIONS (3)
  - ATRIAL FIBRILLATION [None]
  - DRUG HYPERSENSITIVITY [None]
  - MUSCULAR DYSTROPHY [None]
